FAERS Safety Report 8810634 (Version 1)
Quarter: 2012Q4

REPORT INFORMATION
  Report Type: Spontaneous
  Country: US (occurrence: None)
  Receive Date: 20120924
  Receipt Date: 20120924
  Transmission Date: 20130627
  Serious: Yes (Disabling)
  Sender: FDA-Public Use
  Company Number: None

PATIENT
  Age: 74 Year
  Sex: Male
  Weight: 81.65 kg

DRUGS (1)
  1. LEVOFLOXACIN [Suspect]
     Indication: LUNG CONGESTION
     Dosage: 500mg 1 tab/day Mouth
     Route: 048
     Dates: start: 20120831, end: 20120902

REACTIONS (3)
  - Tendon disorder [None]
  - Swelling [None]
  - Gait disturbance [None]
